FAERS Safety Report 5200727-8 (Version None)
Quarter: 2006Q4

REPORT INFORMATION
  Report Type: 
  Country: None (occurrence: None)
  Receive Date: 20061016
  Receipt Date: 20050825
  Transmission Date: 20070319
  Serious: Yes (Hospitalization, Other)
  Sender: FDA-Public Use
  Company Number: 2005120505

PATIENT
  Age: 59 Year
  Sex: Female

DRUGS (7)
  1. NEURONTIN [Suspect]
     Indication: NEUROPATHY
     Dosage: 2800 MG (1 D)
  2. LORTAB [Concomitant]
  3. KEPPRA [Concomitant]
  4. DIOVAN [Concomitant]
  5. XANAX [Concomitant]
  6. CELEXA [Concomitant]
  7. AMBIEN [Concomitant]

REACTIONS (4)
  - CEREBROVASCULAR ACCIDENT [None]
  - DEPRESSION [None]
  - GASTROENTERITIS VIRAL [None]
  - VOMITING [None]
